FAERS Safety Report 7343185-X (Version None)
Quarter: 2011Q1

REPORT INFORMATION
  Report Type: 
  Country: None (occurrence: None)
  Receive Date: 20110310
  Receipt Date: 20110301
  Transmission Date: 20110831
  Serious: Yes (Other)
  Sender: FDA-Public Use
  Company Number: US-JNJFOC-20110301983

PATIENT
  Sex: Female
  Weight: 44.45 kg

DRUGS (4)
  1. TOPAMAX [Suspect]
     Indication: MIGRAINE
     Route: 048
  2. NASONEX [Concomitant]
     Indication: MULTIPLE ALLERGIES
     Route: 045
  3. CALCIUM [Concomitant]
     Indication: MEDICAL DIET
     Route: 048
  4. VITAMIN D [Concomitant]
     Indication: MEDICAL DIET
     Route: 048

REACTIONS (2)
  - PANIC ATTACK [None]
  - HEART RATE IRREGULAR [None]
